FAERS Safety Report 6837129-4 (Version None)
Quarter: 2010Q3

REPORT INFORMATION
  Report Type: 
  Country: None (occurrence: None)
  Receive Date: 20100713
  Receipt Date: 20070504
  Transmission Date: 20110219
  Serious: No
  Sender: FDA-Public Use
  Company Number: US-PFIZER INC-2007037120

PATIENT
  Sex: Female
  Weight: 62.727 kg

DRUGS (3)
  1. CHANTIX [Suspect]
     Indication: SMOKING CESSATION THERAPY
     Dates: start: 20070427, end: 20070503
  2. INDERAL [Concomitant]
  3. EFFEXOR [Concomitant]

REACTIONS (1)
  - NAUSEA [None]
